FAERS Safety Report 21180668 (Version 3)
Quarter: 2022Q3

REPORT INFORMATION
  Report Type: Spontaneous
  Country: US (occurrence: US)
  Receive Date: 20220806
  Receipt Date: 20220915
  Transmission Date: 20221026
  Serious: No
  Sender: FDA-Public Use
  Company Number: US-SA-SAC20220728000902

PATIENT
  Age: 25 Year
  Sex: Female

DRUGS (13)
  1. DUPIXENT [Suspect]
     Active Substance: DUPILUMAB
     Indication: Dermatitis atopic
     Dosage: 300MG, QOW
     Route: 058
     Dates: start: 20220427
  2. AUGMENTIN [Concomitant]
     Active Substance: AMOXICILLIN\CLAVULANATE POTASSIUM
  3. CEPHALEXIN MONOHYDRATE [Concomitant]
     Active Substance: CEPHALEXIN MONOHYDRATE
  4. CICLOPIROX OLAMINE [Concomitant]
     Active Substance: CICLOPIROX OLAMINE
  5. CLOBETASOL PROPIONATE [Concomitant]
     Active Substance: CLOBETASOL PROPIONATE
  6. DESONIDE [Concomitant]
     Active Substance: DESONIDE
  7. DESOWEN [Concomitant]
     Active Substance: DESONIDE
  8. EFUDEX [Concomitant]
     Active Substance: FLUOROURACIL
  9. FLUOCINONIDE [Concomitant]
     Active Substance: FLUOCINONIDE
  10. HYDROXYZINE HYDROCHLORIDE [Concomitant]
     Active Substance: HYDROXYZINE HYDROCHLORIDE
  11. EMOLLIENTS [Concomitant]
     Active Substance: EMOLLIENTS
  12. MUPIROCIN [Concomitant]
     Active Substance: MUPIROCIN
  13. PREDNISONE [Concomitant]
     Active Substance: PREDNISONE

REACTIONS (2)
  - Urticaria [Unknown]
  - Rash [Unknown]

NARRATIVE: CASE EVENT DATE: 20220101
